FAERS Safety Report 8822772 (Version 3)
Quarter: 2012Q4

REPORT INFORMATION
  Report Type: 
  Country: US (occurrence: US)
  Receive Date: 20121003
  Receipt Date: 20121029
  Transmission Date: 20130627
  Serious: Yes (Death, Hospitalization, Other)
  Sender: FDA-Public Use
  Company Number: US-JNJFOC-20120911534

PATIENT
  Age: 55 Year
  Sex: Female

DRUGS (6)
  1. REMICADE [Suspect]
     Indication: COLITIS ULCERATIVE
     Dosage: patient received 4 or 5 infusions
     Route: 042
     Dates: start: 20120403
  2. PREDNISONE [Concomitant]
     Route: 065
  3. AZATHIOPRINE [Concomitant]
     Route: 065
  4. ASACOL [Concomitant]
     Route: 065
  5. APRISO [Concomitant]
     Route: 065
  6. ALLOPURINOL [Concomitant]
     Route: 065

REACTIONS (4)
  - Cardiomyopathy [Fatal]
  - Acute hepatic failure [Unknown]
  - Cardiac failure congestive [Unknown]
  - Hospitalisation [Unknown]
